FAERS Safety Report 18119990 (Version 1)
Quarter: 2020Q3

REPORT INFORMATION
  Report Type: Spontaneous
  Country: US (occurrence: US)
  Receive Date: 20200806
  Receipt Date: 20200806
  Transmission Date: 20201103
  Serious: Yes (Other)
  Sender: FDA-Public Use
  Company Number: US-TEVA-2020-US-1811814

PATIENT
  Sex: Male

DRUGS (1)
  1. VALSARTAN TEVA [Suspect]
     Active Substance: VALSARTAN
     Route: 065
     Dates: start: 2012

REACTIONS (3)
  - Adenocarcinoma [Unknown]
  - Recalled product administered [Unknown]
  - Life expectancy shortened [Unknown]
